FAERS Safety Report 20797618 (Version 1)
Quarter: 2022Q2

REPORT INFORMATION
  Report Type: Spontaneous
  Country: US (occurrence: US)
  Receive Date: 20220506
  Receipt Date: 20220506
  Transmission Date: 20220720
  Serious: No
  Sender: FDA-Public Use
  Company Number: US-TEVA-2022-US-2027289

PATIENT
  Sex: Female

DRUGS (1)
  1. CLONAZEPAM [Suspect]
     Active Substance: CLONAZEPAM
     Route: 065

REACTIONS (4)
  - Nightmare [Unknown]
  - Sleep deficit [Unknown]
  - Anxiety [Unknown]
  - Product quality issue [Unknown]
